FAERS Safety Report 9651802 (Version 7)
Quarter: 2013Q4

REPORT INFORMATION
  Report Type: Spontaneous
  Country: US (occurrence: US)
  Receive Date: 20131029
  Receipt Date: 20131211
  Transmission Date: 20140711
  Serious: Yes (Other)
  Sender: FDA-Public Use
  Company Number: US-JNJFOC-20131014152

PATIENT
  Age: 45 Year
  Sex: Male

DRUGS (3)
  1. REMICADE [Suspect]
     Indication: CROHN^S DISEASE
     Dosage: COMPLETED 2 DOSE OF INFLIXIMAB.
     Route: 042
     Dates: start: 20130807, end: 20130919
  2. VICODIN [Concomitant]
     Dosage: 5/325 AS NEEDED
     Route: 065
  3. SULFASALAZINE [Concomitant]
     Route: 065

REACTIONS (1)
  - Testis cancer [Recovered/Resolved]
